FAERS Safety Report 20512841 (Version 1)
Quarter: 2022Q1

REPORT INFORMATION
  Report Type: Spontaneous
  Country: US (occurrence: None)
  Receive Date: 20220223
  Receipt Date: 20220223
  Transmission Date: 20220424
  Serious: Yes (Disabling)
  Sender: FDA-Public Use
  Company Number: None

PATIENT
  Age: 62 Year
  Sex: Female
  Weight: 55.35 kg

DRUGS (7)
  1. THERATEARS LUBRICANT [Suspect]
     Active Substance: CARBOXYMETHYLCELLULOSE SODIUM
     Dates: start: 20210701, end: 20220222
  2. SODIUM CHLORIDE [Suspect]
     Active Substance: SODIUM CHLORIDE
     Dates: start: 20210701, end: 20220222
  3. WINEN^S MULTIVITAMIN [Concomitant]
  4. PROBIOTIC [Concomitant]
  5. ZINC [Concomitant]
     Active Substance: ZINC
  6. CANNABIDIOL [Concomitant]
     Active Substance: CANNABIDIOL
  7. DEVICE\HYPOCHLOROUS ACID [Suspect]
     Active Substance: DEVICE\HYPOCHLOROUS ACID

REACTIONS (17)
  - Umbilical erythema [None]
  - Peripheral swelling [None]
  - Peripheral swelling [None]
  - Peripheral swelling [None]
  - Chills [None]
  - Eye swelling [None]
  - Skin exfoliation [None]
  - Dysphonia [None]
  - Throat tightness [None]
  - Back pain [None]
  - Palpitations [None]
  - Fatigue [None]
  - Alopecia [None]
  - Seborrhoea [None]
  - Ocular hyperaemia [None]
  - Vision blurred [None]
  - Respiratory tract congestion [None]

NARRATIVE: CASE EVENT DATE: 20210701
